FAERS Safety Report 16497939 (Version 1)
Quarter: 2019Q2

REPORT INFORMATION
  Report Type: Spontaneous
  Country: US (occurrence: US)
  Receive Date: 20190628
  Receipt Date: 20190628
  Transmission Date: 20190711
  Serious: No
  Sender: FDA-Public Use
  Company Number: US-ROCHE-2209784

PATIENT
  Sex: Female

DRUGS (2)
  1. ACTEMRA [Suspect]
     Active Substance: TOCILIZUMAB
     Indication: PRODUCT USED FOR UNKNOWN INDICATION
     Route: 042
     Dates: start: 201705, end: 201712
  2. ENBREL [Concomitant]
     Active Substance: ETANERCEPT
     Indication: RASH
     Route: 065
     Dates: start: 201808, end: 201810

REACTIONS (2)
  - Drug ineffective [Unknown]
  - No adverse event [Unknown]
